FAERS Safety Report 23879735 (Version 3)
Quarter: 2024Q2

REPORT INFORMATION
  Report Type: Report from Study
  Country: US (occurrence: US)
  Receive Date: 20240521
  Receipt Date: 20240605
  Transmission Date: 20240716
  Serious: Yes (Hospitalization)
  Sender: FDA-Public Use
  Company Number: US-Eisai-EC-2024-159490

PATIENT
  Age: 58 Year
  Sex: Male

DRUGS (17)
  1. LENVATINIB [Suspect]
     Active Substance: LENVATINIB
     Indication: Malignant neoplasm of unknown primary site
     Route: 048
     Dates: start: 20230518, end: 20240423
  2. PEMBROLIZUMAB [Suspect]
     Active Substance: PEMBROLIZUMAB
     Indication: Malignant neoplasm of unknown primary site
     Route: 042
     Dates: start: 20230518, end: 20240424
  3. DELTASONE [Concomitant]
     Active Substance: PREDNISONE
     Dates: start: 20231228
  4. MS CONTIN [Concomitant]
     Active Substance: MORPHINE SULFATE
     Dates: start: 20240211
  5. MORPHINE SULFATE [Concomitant]
     Active Substance: MORPHINE SULFATE
     Dates: start: 20240211
  6. GLYCOLAX [Concomitant]
     Active Substance: POLYETHYLENE GLYCOL 3350
     Dates: start: 20240212
  7. TRESIBA [Concomitant]
     Active Substance: INSULIN DEGLUDEC
     Dates: start: 20240104
  8. SYNTHROID [Concomitant]
     Active Substance: LEVOTHYROXINE SODIUM
     Dates: start: 20240315
  9. PERIDEX [Concomitant]
     Active Substance: CHLORHEXIDINE GLUCONATE
     Dates: start: 20240404
  10. SODIUM FLUORIDE [Concomitant]
     Active Substance: SODIUM FLUORIDE\SODIUM MONOFLUOROPHOSPHATE
     Dates: start: 20240404
  11. IMODIUM [Concomitant]
     Active Substance: LOPERAMIDE HYDROCHLORIDE
     Dates: start: 20240424
  12. LIPITOR [Concomitant]
     Active Substance: ATORVASTATIN CALCIUM
     Dates: start: 20130925
  13. GLUCOTROL [Concomitant]
     Active Substance: GLIPIZIDE
     Dates: start: 20210316
  14. LYRICA [Concomitant]
     Active Substance: PREGABALIN
     Dates: start: 20230515
  15. TRULICITY [Concomitant]
     Active Substance: DULAGLUTIDE
     Dosage: 1.5/0.5 MILLIGRAM PER MILLILITRE
     Dates: start: 20230531
  16. REMERON [Concomitant]
     Active Substance: MIRTAZAPINE
     Dates: start: 20230213
  17. PROTONIX [Concomitant]
     Active Substance: PANTOPRAZOLE SODIUM
     Dates: start: 20230920

REACTIONS (3)
  - Back pain [Recovered/Resolved]
  - Non-cardiac chest pain [Not Recovered/Not Resolved]
  - Confusional state [Not Recovered/Not Resolved]

NARRATIVE: CASE EVENT DATE: 20240207
